FAERS Safety Report 6254893-6 (Version None)
Quarter: 2009Q3

REPORT INFORMATION
  Report Type: 
  Country: None (occurrence: None)
  Receive Date: 20090702
  Receipt Date: 20090624
  Transmission Date: 20100115
  Serious: Yes (Hospitalization, Other)
  Sender: FDA-Public Use
  Company Number: FR-AVENTIS-200912345FR

PATIENT
  Age: 88 Year
  Sex: Female

DRUGS (10)
  1. LOVENOX [Suspect]
     Indication: DRUG USE FOR UNKNOWN INDICATION
     Route: 058
     Dates: start: 20090311, end: 20090321
  2. KARDEGIC                           /00002703/ [Suspect]
     Route: 048
     Dates: start: 20090317, end: 20090319
  3. CARTREX [Suspect]
     Indication: DRUG USE FOR UNKNOWN INDICATION
     Route: 048
     Dates: end: 20090321
  4. PANTOPRAZOLE SODIUM [Suspect]
     Indication: DRUG USE FOR UNKNOWN INDICATION
     Route: 048
     Dates: end: 20090321
  5. PLAVIX [Concomitant]
     Route: 048
     Dates: start: 20090319, end: 20090320
  6. AUGMENTIN '125' [Concomitant]
     Route: 048
     Dates: start: 20090309, end: 20090318
  7. TAREG [Concomitant]
     Route: 048
  8. MIRTAZAPINE [Concomitant]
     Indication: DEPRESSION
     Route: 048
  9. GLEEVEC [Concomitant]
     Route: 048
  10. POLARAMINE                         /00043702/ [Concomitant]
     Indication: SKIN REACTION
     Dates: start: 20090319

REACTIONS (7)
  - APHTHOUS STOMATITIS [None]
  - DRUG RASH WITH EOSINOPHILIA AND SYSTEMIC SYMPTOMS [None]
  - EOSINOPHIL COUNT INCREASED [None]
  - HYPERTHERMIA [None]
  - PLATELET COUNT DECREASED [None]
  - PRURITUS [None]
  - RASH MACULO-PAPULAR [None]
